FAERS Safety Report 16945417 (Version 1)
Quarter: 2019Q4

REPORT INFORMATION
  Report Type: Spontaneous
  Country: US (occurrence: US)
  Receive Date: 20190830
  Receipt Date: 20190830
  Transmission Date: 20200122
  Serious: Yes (Hospitalization)
  Sender: FDA-Public Use
  Company Number: None

PATIENT
  Age: 15 Year
  Sex: Male
  Weight: 86.5 kg

DRUGS (21)
  1. DOXORUBICIN HYDROCHLORIDE. [Suspect]
     Active Substance: DOXORUBICIN HYDROCHLORIDE
     Dates: end: 20170629
  2. CYCLOPHOSPHAMIDE. [Suspect]
     Active Substance: CYCLOPHOSPHAMIDE
     Dates: end: 20170713
  3. METHOTREXATE. [Suspect]
     Active Substance: METHOTREXATE
     Dates: end: 20170713
  4. LORATIDINE [Concomitant]
     Active Substance: LORATADINE
  5. DEXAMETHASONE. [Suspect]
     Active Substance: DEXAMETHASONE
     Dates: end: 20170715
  6. LOVENOX [Concomitant]
     Active Substance: ENOXAPARIN SODIUM
  7. ZOFRAN [Concomitant]
     Active Substance: ONDANSETRON HYDROCHLORIDE
  8. ZYRTEC [Concomitant]
     Active Substance: CETIRIZINE HYDROCHLORIDE
  9. MIRALAX [Concomitant]
     Active Substance: POLYETHYLENE GLYCOL 3350
  10. ATIVAN [Concomitant]
     Active Substance: LORAZEPAM
  11. BACTRIM [Concomitant]
     Active Substance: SULFAMETHOXAZOLE\TRIMETHOPRIM
  12. ONCASPAR [Suspect]
     Active Substance: PEGASPARGASE
     Dates: end: 20170706
  13. THIOGUANINE (6-TG) [Suspect]
     Active Substance: THIOGUANINE ANHYDROUS
     Dates: end: 20170723
  14. LISINOPRIL. [Concomitant]
     Active Substance: LISINOPRIL
  15. MARINOL [Concomitant]
     Active Substance: DRONABINOL
  16. SENNA [Concomitant]
     Active Substance: SENNA LEAF\SENNOSIDES\SENNOSIDES A AND B
  17. VITAMIN D [Concomitant]
     Active Substance: VITAMIN D NOS
  18. CYTARABINE. [Suspect]
     Active Substance: CYTARABINE
     Dates: end: 20170723
  19. VINCRISTINE SULFATE. [Suspect]
     Active Substance: VINCRISTINE SULFATE
     Dates: end: 20170629
  20. PHENERGAN [Concomitant]
     Active Substance: PROMETHAZINE HYDROCHLORIDE
  21. ZANTAC [Concomitant]
     Active Substance: RANITIDINE HYDROCHLORIDE

REACTIONS (11)
  - Weight decreased [None]
  - Gastritis [None]
  - Drug ineffective [None]
  - Dehydration [None]
  - Hypophagia [None]
  - Diarrhoea [None]
  - Nausea [None]
  - Clostridium test positive [None]
  - Posterior reversible encephalopathy syndrome [None]
  - Vomiting [None]
  - Abdominal pain [None]

NARRATIVE: CASE EVENT DATE: 20170626
